FAERS Safety Report 9283342 (Version 1)
Quarter: 2013Q2

REPORT INFORMATION
  Report Type: Spontaneous
  Country: US (occurrence: US)
  Receive Date: 20130510
  Receipt Date: 20130510
  Transmission Date: 20140414
  Serious: No
  Sender: FDA-Public Use
  Company Number: US-GLAXOSMITHKLINE-A0999631A

PATIENT
  Age: 45 Year
  Sex: Female

DRUGS (3)
  1. TYKERB [Suspect]
     Indication: PRODUCT USED FOR UNKNOWN INDICATION
     Dosage: 250MG SEE DOSAGE TEXT
     Route: 048
  2. XELODA [Concomitant]
  3. ALEVE [Concomitant]

REACTIONS (3)
  - Fatigue [Unknown]
  - Alopecia [Unknown]
  - Skin discolouration [Unknown]
